FAERS Safety Report 9311750 (Version 2)
Quarter: 2013Q2

REPORT INFORMATION
  Report Type: Spontaneous
  Country: US (occurrence: None)
  Receive Date: 20120914
  Receipt Date: 20120914
  Transmission Date: 20140414
  Serious: Yes (Hospitalization, Other)
  Sender: FDA-Public Use
  Company Number: JPI-P-014558

PATIENT
  Age: 55 Year
  Sex: Female
  Weight: 68.04 kg

DRUGS (11)
  1. XYREM [Suspect]
     Indication: SLEEP DISORDER
     Route: 048
     Dates: start: 20101222
  2. DULOXETINE HYDROCHLORIDE [Concomitant]
  3. L-METHYLFOLATE [Concomitant]
  4. CALCIUM [Concomitant]
  5. MULTIVITAMINS [Concomitant]
  6. BALCOFEN [Concomitant]
  7. TIZANIDINE [Concomitant]
  8. ESZOPICLONE [Concomitant]
  9. QUETIAPINE FUMARATE [Concomitant]
  10. CALCIUM [Concomitant]
  11. ONE-DAY WOMAN^S VITAMIN [Concomitant]

REACTIONS (5)
  - Fall [None]
  - Ligament sprain [None]
  - Wrist fracture [None]
  - Open fracture [None]
  - Ankle fracture [None]
